FAERS Safety Report 10286408 (Version 1)
Quarter: 2014Q3

REPORT INFORMATION
  Report Type: Spontaneous
  Country: DK (occurrence: None)
  Receive Date: 20140707
  Receipt Date: 20140707
  Transmission Date: 20150326
  Serious: Yes (Other)
  Sender: FDA-Public Use
  Company Number: 2014-001865

PATIENT
  Age: 70 Year
  Sex: Female
  Weight: 81 kg

DRUGS (7)
  1. ZOLEDRONATE [Suspect]
     Active Substance: ZOLEDRONIC ACID
     Indication: OSTEOPOROSIS
     Dosage: 5 MG ONCE A YEAR, INTRAVENOUS
     Route: 042
     Dates: start: 200709
  2. ETIDRONATE DISODIUM. [Suspect]
     Active Substance: ETIDRONATE DISODIUM
     Route: 048
     Dates: start: 1999, end: 2003
  3. CHOLECALCIFEROL (COLECALCIFEROL) [Concomitant]
  4. FEMHRT [Suspect]
     Active Substance: ETHINYL ESTRADIOL\NORETHINDRONE ACETATE
     Indication: MENOPAUSAL SYMPTOMS
     Dates: start: 1984, end: 2002
  5. PAMIDRONATE [Suspect]
     Active Substance: PAMIDRONATE DISODIUM
     Indication: OSTEOPOROSIS
     Dosage: 30 MG EVERY THREE MONTHS, INTRAVENOUS
     Route: 042
     Dates: start: 2006
  6. CALCIUM CARBONATE (CALCIUM CARBONATE) (CALCIUM CARBONATE) [Concomitant]
     Active Substance: CALCIUM CARBONATE
  7. ALENDRONATE [Suspect]
     Active Substance: ALENDRONATE SODIUM
     Indication: OSTEOPOROSIS
     Dates: start: 2003

REACTIONS (6)
  - Low turnover osteopathy [None]
  - Body height decreased [None]
  - Atypical femur fracture [None]
  - Femur fracture [None]
  - Fracture nonunion [None]
  - Spinal compression fracture [None]

NARRATIVE: CASE EVENT DATE: 2005
